FAERS Safety Report 9145509 (Version 2)
Quarter: 2013Q2

REPORT INFORMATION
  Report Type: Report from Study
  Country: CA (occurrence: CA)
  Receive Date: 20130307
  Receipt Date: 20130506
  Transmission Date: 20140414
  Serious: Yes (Hospitalization, Other)
  Sender: FDA-Public Use
  Company Number: CA-JNJFOC-20130217269

PATIENT
  Age: 35 Year
  Sex: Male
  Weight: 66.6 kg

DRUGS (1)
  1. REMICADE [Suspect]
     Indication: CROHN^S DISEASE
     Route: 042
     Dates: start: 20130116

REACTIONS (2)
  - Fistula [Recovering/Resolving]
  - Staphylococcal infection [Recovering/Resolving]
